FAERS Safety Report 21150967 (Version 3)
Quarter: 2022Q3

REPORT INFORMATION
  Report Type: Spontaneous
  Country: IN (occurrence: IN)
  Receive Date: 20220729
  Receipt Date: 20220805
  Transmission Date: 20221027
  Serious: Yes (Death, Life-Threatening, Hospitalization, Other)
  Sender: FDA-Public Use
  Company Number: IN-SA-2022SA297670

PATIENT
  Age: 39 Year
  Sex: Female

DRUGS (6)
  1. DOCETAXEL [Suspect]
     Active Substance: DOCETAXEL
     Indication: Breast cancer metastatic
     Dosage: UNK
     Dates: start: 2021, end: 20210730
  2. DOCETAXEL [Suspect]
     Active Substance: DOCETAXEL
     Indication: Metastases to lung
     Dosage: 75 MG/M2, 3-WEEKLY SCHEDULE
     Dates: start: 2021, end: 2021
  3. DOCETAXEL [Suspect]
     Active Substance: DOCETAXEL
     Indication: Metastases to liver
  4. TRASTUZUMAB [Concomitant]
     Active Substance: TRASTUZUMAB
     Indication: Breast cancer metastatic
     Dosage: 8 MG/KG
     Dates: start: 2021
  5. TRASTUZUMAB [Concomitant]
     Active Substance: TRASTUZUMAB
     Indication: Metastases to liver
     Dosage: 6 MG/KG
  6. TRASTUZUMAB [Concomitant]
     Active Substance: TRASTUZUMAB
     Indication: Metastases to lung

REACTIONS (14)
  - Toxic epidermal necrolysis [Fatal]
  - Skin abrasion [Fatal]
  - Blister [Fatal]
  - Stomatitis [Fatal]
  - Dysphagia [Fatal]
  - Eye discharge [Fatal]
  - Conjunctival hyperaemia [Fatal]
  - Vomiting [Fatal]
  - Diarrhoea [Fatal]
  - Dyspnoea [Fatal]
  - Pyrexia [Fatal]
  - Skin exfoliation [Fatal]
  - Rash erythematous [Fatal]
  - Pleural effusion [Fatal]

NARRATIVE: CASE EVENT DATE: 20210808
